FAERS Safety Report 18697058 (Version 1)
Quarter: 2021Q1

REPORT INFORMATION
  Report Type: Spontaneous
  Country: US (occurrence: US)
  Receive Date: 20210104
  Receipt Date: 20210104
  Transmission Date: 20210419
  Serious: No
  Sender: FDA-Public Use
  Company Number: US-009507513-2012USA004389

PATIENT
  Sex: Female

DRUGS (1)
  1. KEYTRUDA [Suspect]
     Active Substance: PEMBROLIZUMAB
     Dosage: UNKNOWN DOSE EVERY 3 WEEKS
     Route: 042
     Dates: start: 202001

REACTIONS (3)
  - Memory impairment [Not Recovered/Not Resolved]
  - Slow speech [Not Recovered/Not Resolved]
  - Slow response to stimuli [Not Recovered/Not Resolved]

NARRATIVE: CASE EVENT DATE: 2020
